FAERS Safety Report 18059459 (Version 1)
Quarter: 2020Q3

REPORT INFORMATION
  Report Type: Spontaneous
  Country: US (occurrence: US)
  Receive Date: 20200723
  Receipt Date: 20200723
  Transmission Date: 20201103
  Serious: No
  Sender: FDA-Public Use
  Company Number: US-PFIZER INC-2019158291

PATIENT
  Age: 76 Year
  Sex: Female

DRUGS (1)
  1. LYRICA [Suspect]
     Active Substance: PREGABALIN
     Dosage: 75 MG, 1X/DAY(SIG: TAKE 1 CAPSULE (75 MG) BY ORAL ROUTE ONCE DAILY FOR 30 DAYS)
     Route: 048

REACTIONS (1)
  - Hypoacusis [Unknown]
